FAERS Safety Report 11372130 (Version 2)
Quarter: 2016Q2

REPORT INFORMATION
  Report Type: Spontaneous
  Country: US (occurrence: US)
  Receive Date: 20150812
  Receipt Date: 20160525
  Transmission Date: 20160815
  Serious: Yes (Death, Life-Threatening, Hospitalization, Other)
  Sender: FDA-Public Use
  Company Number: US-ABBVIE-15P-163-1442521-00

PATIENT
  Sex: Female

DRUGS (10)
  1. ATENOLOL. [Suspect]
     Active Substance: ATENOLOL
     Indication: PRODUCT USED FOR UNKNOWN INDICATION
     Dosage: IN THE MORNING
     Route: 065
  2. PLAQUENIL [Suspect]
     Active Substance: HYDROXYCHLOROQUINE SULFATE
     Indication: PRODUCT USED FOR UNKNOWN INDICATION
     Route: 065
  3. HUMIRA [Suspect]
     Active Substance: ADALIMUMAB
     Indication: ARTHRITIS
     Route: 058
  4. SEROQUEL [Suspect]
     Active Substance: QUETIAPINE FUMARATE
     Indication: PRODUCT USED FOR UNKNOWN INDICATION
     Dosage: AT BEDTIME
     Route: 065
  5. ZOLOFT [Suspect]
     Active Substance: SERTRALINE HYDROCHLORIDE
     Dosage: ALTERNATING WITH 25 MG DOSE, IN THE MORNING
     Route: 065
  6. OXYCODONE [Suspect]
     Active Substance: OXYCODONE
     Indication: PAIN
     Route: 065
  7. KLONOPIN [Suspect]
     Active Substance: CLONAZEPAM
     Indication: PRODUCT USED FOR UNKNOWN INDICATION
     Dosage: IN THE MORNING
     Route: 065
  8. OMEPRAZOLE. [Suspect]
     Active Substance: OMEPRAZOLE
     Indication: PRODUCT USED FOR UNKNOWN INDICATION
     Dosage: BEFORE MEALS
     Route: 065
  9. OXYCODONE AND ACETAMINOPHEN [Suspect]
     Active Substance: ACETAMINOPHEN\OXYCODONE HYDROCHLORIDE
     Indication: BACK PAIN
     Dosage: 5 MG/325 MG
     Route: 065
  10. ZOLOFT [Suspect]
     Active Substance: SERTRALINE HYDROCHLORIDE
     Indication: PRODUCT USED FOR UNKNOWN INDICATION
     Dosage: ALTERNATING WITH 37.5 MG DOSE, IN THE MORNING
     Route: 065

REACTIONS (50)
  - Cardiac arrest [Fatal]
  - Large intestine perforation [Fatal]
  - Diarrhoea haemorrhagic [Unknown]
  - Nausea [Unknown]
  - Mental impairment [Unknown]
  - Back pain [Recovering/Resolving]
  - Faecaloma [Unknown]
  - Agitation [Unknown]
  - Amnesia [Unknown]
  - Insomnia [Unknown]
  - Asthenia [Unknown]
  - Abdominal discomfort [Unknown]
  - Feeling abnormal [Unknown]
  - Dermatitis allergic [Unknown]
  - Chest discomfort [Unknown]
  - Confusional state [Unknown]
  - Depression [Unknown]
  - Somnolence [Unknown]
  - Headache [Unknown]
  - Dyspepsia [Unknown]
  - Visual acuity reduced [Unknown]
  - Flatulence [Unknown]
  - Nervousness [Unknown]
  - Aspiration [Unknown]
  - Sexual dysfunction [Unknown]
  - Urinary tract infection [Unknown]
  - Visual impairment [Unknown]
  - Mood altered [Unknown]
  - Sepsis [Fatal]
  - Vision blurred [Unknown]
  - Fatigue [Unknown]
  - Irritability [Unknown]
  - Immunodeficiency [Unknown]
  - Abdominal pain upper [Unknown]
  - Mental disorder [Unknown]
  - Constipation [Unknown]
  - Anxiety [Unknown]
  - Abnormal behaviour [Unknown]
  - Urticaria [Unknown]
  - Allergic oedema [Unknown]
  - Dizziness [Unknown]
  - Memory impairment [Unknown]
  - Dry mouth [Unknown]
  - Panic attack [Unknown]
  - Allergic respiratory symptom [Unknown]
  - Abdominal distension [Unknown]
  - Gastrooesophageal reflux disease [Unknown]
  - Electrolyte depletion [Unknown]
  - Mental status changes [Unknown]
  - Impaired quality of life [Unknown]
